FAERS Safety Report 8484554-4 (Version None)
Quarter: 2012Q3

REPORT INFORMATION
  Report Type: 
  Country: None (occurrence: None)
  Receive Date: 20120703
  Receipt Date: 20120622
  Transmission Date: 20120928
  Serious: Yes (Hospitalization, Disabling)
  Sender: FDA-Public Use
  Company Number: FR-PFIZER INC-2012156904

PATIENT
  Age: 75 Year
  Sex: Female

DRUGS (5)
  1. PENTOXIFYLLINE [Concomitant]
     Dosage: UNK
     Dates: start: 20111201
  2. TANGANIL [Concomitant]
     Dosage: UNK
     Dates: start: 20111201
  3. ALDACTAZINE [Concomitant]
     Dosage: UNK
     Dates: start: 20111201
  4. CORDARONE [Suspect]
     Indication: ATRIAL FIBRILLATION
     Dosage: 200 MG, DAILY
     Route: 048
     Dates: start: 20111201, end: 20120525
  5. LERCANIDIPINE [Concomitant]
     Dosage: UNK
     Dates: start: 20111201

REACTIONS (1)
  - CEREBELLAR SYNDROME [None]
